FAERS Safety Report 4398071-4 (Version None)
Quarter: 2004Q3

REPORT INFORMATION
  Report Type: 
  Country: None (occurrence: None)
  Receive Date: 20040714
  Receipt Date: 20040714
  Transmission Date: 20050211
  Serious: Yes (Other)
  Sender: FDA-Public Use
  Company Number: None

PATIENT
  Age: 34 Year
  Sex: Female
  Weight: 67.1324 kg

DRUGS (1)
  1. BUPROPRION 150 MG TEVA [Suspect]
     Dosage: 1 PER DAY ORAL
     Route: 048
     Dates: start: 20040421, end: 20040713

REACTIONS (5)
  - ANXIETY [None]
  - DEPRESSION [None]
  - DRUG EFFECT DECREASED [None]
  - LIBIDO DECREASED [None]
  - PHARMACEUTICAL PRODUCT COMPLAINT [None]
